FAERS Safety Report 5445997-6 (Version None)
Quarter: 2007Q3

REPORT INFORMATION
  Report Type: 
  Country: None (occurrence: None)
  Receive Date: 20070907
  Receipt Date: 20070829
  Transmission Date: 20080115
  Serious: Yes (Other)
  Sender: FDA-Public Use
  Company Number: CA-JNJFOC-20070900037

PATIENT
  Sex: Female

DRUGS (3)
  1. TRAMACET [Suspect]
     Indication: DRUG USE FOR UNKNOWN INDICATION
     Route: 065
  2. DILAUDID [Concomitant]
     Route: 065
  3. FLEXERIL [Concomitant]
     Route: 065

REACTIONS (3)
  - COAGULATION TIME PROLONGED [None]
  - FACTOR IX DEFICIENCY [None]
  - FACTOR VIII DEFICIENCY [None]
